FAERS Safety Report 24114798 (Version 1)
Quarter: 2024Q3

REPORT INFORMATION
  Report Type: Report from Study
  Country: GB (occurrence: GB)
  Receive Date: 20240721
  Receipt Date: 20240721
  Transmission Date: 20241017
  Serious: Yes (Hospitalization)
  Sender: BAXTER
  Company Number: GB-BAXTER-2024BAX021551

PATIENT
  Sex: Female

DRUGS (13)
  1. CERNEVIT [Suspect]
     Active Substance: VITAMINS
     Indication: Malnutrition
     Dosage: 5 ML, 6 DAYS, 12 HOURS
     Route: 065
  2. CERNEVIT [Suspect]
     Active Substance: VITAMINS
     Indication: Parenteral nutrition
  3. SODIUM CHLORIDE [Suspect]
     Active Substance: SODIUM CHLORIDE
     Indication: Malnutrition
     Dosage: 10 ML 6 DAYS, 12 HOURS
     Route: 065
  4. SODIUM CHLORIDE [Suspect]
     Active Substance: SODIUM CHLORIDE
     Indication: Parenteral nutrition
     Dosage: 1 L, 6 DAYS, 12 HOURS
     Route: 065
  5. ONDANSETRON [Suspect]
     Active Substance: ONDANSETRON
     Indication: Malnutrition
     Dosage: 4 MG, 6 DAYS, 12 HOURS
     Route: 065
  6. ONDANSETRON [Suspect]
     Active Substance: ONDANSETRON
     Indication: Parenteral nutrition
  7. IRON\MINERALS\POTASSIUM IOD\SODIUM FLUORIDE\SODIUM MOLYBDATE\SODIUM SE [Suspect]
     Active Substance: IRON\MINERALS\POTASSIUM IOD\SODIUM FLUORIDE\SODIUM MOLYBDATE\SODIUM SELENITE\ZINC
     Indication: Malnutrition
     Dosage: 10 ML 6 DAYS, 12 HOURS
     Route: 065
  8. IRON\MINERALS\POTASSIUM IOD\SODIUM FLUORIDE\SODIUM MOLYBDATE\SODIUM SE [Suspect]
     Active Substance: IRON\MINERALS\POTASSIUM IOD\SODIUM FLUORIDE\SODIUM MOLYBDATE\SODIUM SELENITE\ZINC
     Indication: Parenteral nutrition
  9. AMINO ACIDS\DEXTROSE\ELECTROLYTES NOS [Suspect]
     Active Substance: AMINO ACIDS\DEXTROSE\ELECTROLYTES NOS
     Indication: Malnutrition
     Dosage: AT AN UNSPECIFIED DOSE 6 DAYS 12 HOURS
     Route: 065
  10. AMINO ACIDS\DEXTROSE\ELECTROLYTES NOS [Suspect]
     Active Substance: AMINO ACIDS\DEXTROSE\ELECTROLYTES NOS
     Indication: Parenteral nutrition
  11. TAUROLIDINE [Suspect]
     Active Substance: TAUROLIDINE
     Indication: Malnutrition
     Dosage: 1 ML, 6 DAYS, 12 HOURS
     Route: 065
  12. TAUROLIDINE [Suspect]
     Active Substance: TAUROLIDINE
     Indication: Parenteral nutrition
  13. UNSPECIFIED INGREDIENT [Suspect]
     Active Substance: UNSPECIFIED INGREDIENT
     Route: 065

REACTIONS (2)
  - Malaise [Unknown]
  - Pyrexia [Unknown]
